FAERS Safety Report 10371428 (Version 2)
Quarter: 2014Q3

REPORT INFORMATION
  Report Type: Spontaneous
  Country: CH (occurrence: None)
  Receive Date: 20140806
  Receipt Date: 20140916
  Transmission Date: 20150326
  Serious: Yes (Other)
  Sender: FDA-Public Use
  Company Number: 20140483

PATIENT
  Age: 41 Year
  Sex: Female

DRUGS (5)
  1. TEINA (ZEAXANTHIN/LUTEIN) [Concomitant]
  2. FERROUS SULFATE [Concomitant]
     Active Substance: FERROUS SULFATE\FERROUS SULFATE, DRIED
     Indication: ANAEMIA
     Dosage: UNKNOWN ORAL
     Route: 048
  3. VENOFER [Suspect]
     Active Substance: IRON SUCROSE
     Indication: ANAEMIA
     Dosage: 1 AMPOULE IN 200ML OVER 35 MIN
     Route: 042
     Dates: start: 201407, end: 201407
  4. VITERGAN PLUS (POLYVITAMINS NOS) [Concomitant]
  5. B COMPLEX (PYRIDOXINE HYDROCHLORIDE) [Concomitant]

REACTIONS (6)
  - Drug interaction [None]
  - Rash [None]
  - Hypertension [None]
  - Incorrect drug administration rate [None]
  - Fatigue [None]
  - Dyspnoea [None]

NARRATIVE: CASE EVENT DATE: 201407
